FAERS Safety Report 8857663 (Version 1)
Quarter: 2012Q4

REPORT INFORMATION
  Report Type: 
  Country: US (occurrence: US)
  Receive Date: 20121024
  Receipt Date: 20121024
  Transmission Date: 20130627
  Serious: No
  Sender: FDA-Public Use
  Company Number: US-ASTRAZENECA-2012SE78597

PATIENT
  Age: 66 Year
  Sex: Female
  Weight: 81.6 kg

DRUGS (8)
  1. NEXIUM [Suspect]
     Indication: GASTROOESOPHAGEAL REFLUX DISEASE
     Route: 048
     Dates: start: 2011
  2. NEXIUM [Suspect]
     Indication: GASTROOESOPHAGEAL REFLUX DISEASE
     Dosage: NEXIUM 40MG THREE TIMES PER WEEK OR PRN.
     Route: 048
     Dates: start: 20121010
  3. TUMS [Concomitant]
  4. ZANTAC [Concomitant]
  5. SIMVASTATIN [Concomitant]
  6. VITAMIN D [Concomitant]
  7. NAPROXEN [Concomitant]
     Indication: ARTHRALGIA
  8. PROZAC [Concomitant]

REACTIONS (4)
  - Dyspepsia [Recovered/Resolved]
  - Vomiting [Unknown]
  - Off label use [Unknown]
  - Drug dose omission [Unknown]
